FAERS Safety Report 5278035-9 (Version None)
Quarter: 2007Q1

REPORT INFORMATION
  Report Type: 
  Country: None (occurrence: None)
  Receive Date: 20070321
  Receipt Date: 20070309
  Transmission Date: 20070707
  Serious: Yes (Other)
  Sender: FDA-Public Use
  Company Number: 2007SP003221

PATIENT
  Age: 76 Year
  Sex: Male

DRUGS (5)
  1. TEMODAL [Suspect]
     Indication: GLIOBLASTOMA MULTIFORME
     Dosage: 75 MG/M2; ; PO
     Route: 048
     Dates: start: 20070116, end: 20070216
  2. STEROID [Concomitant]
  3. ANTICONVULSANT [Concomitant]
  4. DOGMATYL [Concomitant]
  5. RADIOTHERAPY [Concomitant]

REACTIONS (1)
  - INTERSTITIAL LUNG DISEASE [None]
